FAERS Safety Report 8018039-6 (Version None)
Quarter: 2012Q1

REPORT INFORMATION
  Report Type: 
  Country: None (occurrence: None)
  Receive Date: 20120103
  Receipt Date: 20111228
  Transmission Date: 20120608
  Serious: Yes (Other)
  Sender: FDA-Public Use
  Company Number: US-JNJFOC-20111212236

PATIENT
  Age: 61 Year
  Sex: Female

DRUGS (8)
  1. XARELTO [Suspect]
     Indication: KNEE ARTHROPLASTY
     Route: 048
  2. VITAMIN B COMPLEX CAP [Concomitant]
  3. VITAMIN A [Concomitant]
  4. LISINOPRIL [Concomitant]
  5. E VITAMIN [Concomitant]
  6. MAGNESIUM [Concomitant]
  7. HYDROCHLOROTHIAZIDE [Concomitant]
  8. ZOCOR [Concomitant]

REACTIONS (1)
  - DEEP VEIN THROMBOSIS [None]
